FAERS Safety Report 23263296 (Version 1)
Quarter: 2023Q4

REPORT INFORMATION
  Report Type: Spontaneous
  Country: US (occurrence: None)
  Receive Date: 20231204
  Receipt Date: 20231204
  Transmission Date: 20240109
  Serious: Yes (Disabling, Other)
  Sender: FDA-Public Use
  Company Number: None

PATIENT
  Age: 36 Year
  Sex: Female
  Weight: 108 kg

DRUGS (1)
  1. CIPROFLOXACIN [Suspect]
     Active Substance: CIPROFLOXACIN
     Indication: Urinary tract infection
     Dates: end: 20230910

REACTIONS (12)
  - Tendon pain [None]
  - Nervous system disorder [None]
  - Diarrhoea [None]
  - Temporomandibular joint syndrome [None]
  - Dry mouth [None]
  - Headache [None]
  - Sleep terror [None]
  - Candida infection [None]
  - Dizziness [None]
  - Fatigue [None]
  - Depression [None]
  - Gastrooesophageal reflux disease [None]

NARRATIVE: CASE EVENT DATE: 20200910
